FAERS Safety Report 10712415 (Version 1)
Quarter: 2015Q1

REPORT INFORMATION
  Report Type: Spontaneous
  Country: US (occurrence: US)
  Receive Date: 20150115
  Receipt Date: 20150115
  Transmission Date: 20150721
  Serious: No
  Sender: FDA-Public Use
  Company Number: US-BRISTOL-MYERS SQUIBB COMPANY-BMS-2015-000371

PATIENT
  Sex: Male

DRUGS (12)
  1. FORTESTA [Concomitant]
     Active Substance: TESTOSTERONE
  2. FENOFIBRATE. [Concomitant]
     Active Substance: FENOFIBRATE
  3. PLAVIX [Concomitant]
     Active Substance: CLOPIDOGREL BISULFATE
  4. PEPCID                             /00305201/ [Concomitant]
  5. LOVAZA [Concomitant]
     Active Substance: OMEGA-3-ACID ETHYL ESTERS
  6. BYETTA [Suspect]
     Active Substance: EXENATIDE
     Indication: DIABETES MELLITUS
     Dosage: 5 ?G, BID
     Route: 058
     Dates: start: 20141111
  7. METFORMIN [Concomitant]
     Active Substance: METFORMIN HYDROCHLORIDE
  8. TRAZODON [Concomitant]
     Active Substance: TRAZODONE HYDROCHLORIDE
  9. GLIMEPIRIDE. [Concomitant]
     Active Substance: GLIMEPIRIDE
  10. CRESTOR [Concomitant]
     Active Substance: ROSUVASTATIN CALCIUM
     Indication: PRODUCT USED FOR UNKNOWN INDICATION
     Route: 065
  11. COREG [Concomitant]
     Active Substance: CARVEDILOL
  12. LEXAPRO [Concomitant]
     Active Substance: ESCITALOPRAM OXALATE

REACTIONS (4)
  - Overdose [Unknown]
  - Product quality issue [Unknown]
  - Dizziness [Unknown]
  - Abdominal pain upper [Unknown]
